FAERS Safety Report 6699310-7 (Version None)
Quarter: 2010Q2

REPORT INFORMATION
  Report Type: 
  Country: None (occurrence: None)
  Receive Date: 20100427
  Receipt Date: 20100415
  Transmission Date: 20101027
  Serious: Yes (Hospitalization, Disabling)
  Sender: FDA-Public Use
  Company Number: US-ELI_LILLY_AND_COMPANY-US200911005496

PATIENT
  Sex: Male
  Weight: 129.71 kg

DRUGS (24)
  1. ZYPREXA [Suspect]
     Dosage: 1 D/F, UNK
     Dates: start: 20030701, end: 20051101
  2. ZYPREXA [Suspect]
     Dosage: 10 MG, DAILY (1/D)
     Dates: start: 20051101
  3. ZYPREXA [Suspect]
     Dosage: 7.5 MG, DAILY (1/D)
  4. ZYPREXA [Suspect]
     Dosage: 5 MG, DAILY (1/D)
  5. ZYPREXA [Suspect]
     Dosage: 2.5 MG, DAILY (1/D)
     Dates: end: 20090101
  6. FLUPHENAZINE [Concomitant]
     Dosage: 2.5 MG, DAILY (1/D)
     Dates: start: 20090101, end: 20090101
  7. FLUPHENAZINE [Concomitant]
     Dosage: 1 MG, EACH EVENING
  8. LAMICTAL [Concomitant]
     Dosage: 300 MG, DAILY (1/D)
     Dates: start: 20050101
  9. LAMICTAL [Concomitant]
     Dosage: 200 MG, 2/D
  10. LAMICTAL [Concomitant]
     Dosage: 200 MG, EACH EVENING
  11. CHANTIX                            /05703001/ [Concomitant]
  12. SEPTRA [Concomitant]
     Dosage: 2 D/F, 2/D
  13. CIPROFLOXACIN [Concomitant]
     Dosage: 500 MG, 2/D
  14. ALPRAZOLAM [Concomitant]
     Dosage: 0.25 MG, AS NEEDED
  15. ZOLPIDEM [Concomitant]
     Dosage: 10 MG, EACH EVENING
  16. METHYLPREDNISOLONE [Concomitant]
  17. TUSSIONEX [Concomitant]
     Dosage: 1 D/F, 2/D
  18. AZITHROMYCIN [Concomitant]
  19. FLUCONAZOLE [Concomitant]
     Dosage: 150 MG, UNK
  20. NYSTATIN [Concomitant]
  21. PROPOXYPHENE HYDROCHLORIDE W/PARACETAMOL [Concomitant]
  22. CLINDAMYCIN [Concomitant]
     Dosage: 300 MG, 4/D
  23. IBUPROFEN [Concomitant]
     Dosage: 800 MG, 3/D
  24. SINGULAIR [Concomitant]
     Dosage: 10 MG, DAILY (1/D)

REACTIONS (14)
  - BLOOD CHOLESTEROL INCREASED [None]
  - BLOOD TRIGLYCERIDES INCREASED [None]
  - DEPRESSION [None]
  - DIABETES MELLITUS [None]
  - HAEMATURIA [None]
  - HUNGER [None]
  - METABOLIC DISORDER [None]
  - OBESITY [None]
  - RENAL CYST [None]
  - SEDATION [None]
  - SLEEP APNOEA SYNDROME [None]
  - SUBCUTANEOUS ABSCESS [None]
  - VISION BLURRED [None]
  - WEIGHT INCREASED [None]
